FAERS Safety Report 4946443-9 (Version None)
Quarter: 2006Q1

REPORT INFORMATION
  Report Type: 
  Country: None (occurrence: None)
  Receive Date: 20060317
  Receipt Date: 20060313
  Transmission Date: 20060701
  Serious: Yes (Death, Hospitalization)
  Sender: FDA-Public Use
  Company Number: 2006UW04097

PATIENT
  Age: 49 Year
  Sex: Female

DRUGS (3)
  1. IRESSA [Suspect]
     Indication: METASTATIC RENAL CELL CARCINOMA
     Route: 048
     Dates: start: 20051128
  2. INTRON A [Suspect]
     Indication: METASTATIC RENAL CELL CARCINOMA
     Dates: start: 20051128
  3. NARCOTIC AGONIST ANALGESIC [Suspect]
     Indication: PAIN

REACTIONS (4)
  - DEHYDRATION [None]
  - DISEASE PROGRESSION [None]
  - MENTAL STATUS CHANGES [None]
  - RESPIRATORY FAILURE [None]
